FAERS Safety Report 10110105 (Version 4)
Quarter: 2015Q1

REPORT INFORMATION
  Report Type: Spontaneous
  Country: US (occurrence: None)
  Receive Date: 20140421
  Receipt Date: 20150120
  Transmission Date: 20150720
  Serious: No
  Sender: FDA-Public Use
  Company Number: AEGR000367

PATIENT
  Age: 64 Year
  Sex: Female
  Weight: 59.6 kg

DRUGS (4)
  1. JUXTAPID [Suspect]
     Active Substance: LOMITAPIDE MESYLATE
     Indication: TYPE IIA HYPERLIPIDAEMIA
     Route: 048
     Dates: start: 20140312, end: 20140526
  2. SYNTHROID [Concomitant]
     Active Substance: LEVOTHYROXINE SODIUM
  3. TRAZODONE HCL (TRAZODONE HYDROCHLORIDE) [Concomitant]
  4. ZOLOFT [Concomitant]
     Active Substance: SERTRALINE HYDROCHLORIDE

REACTIONS (9)
  - Constipation [None]
  - Aphasia [None]
  - Weight decreased [None]
  - Abnormal dreams [None]
  - Heart rate increased [None]
  - Memory impairment [None]
  - Hunger [None]
  - Asthenia [None]
  - Arthritis [None]

NARRATIVE: CASE EVENT DATE: 201402
